FAERS Safety Report 24018787 (Version 1)
Quarter: 2024Q2

REPORT INFORMATION
  Report Type: Spontaneous
  Country: MX (occurrence: MX)
  Receive Date: 20240627
  Receipt Date: 20240627
  Transmission Date: 20240716
  Serious: Yes (Other)
  Sender: FDA-Public Use
  Company Number: MX-BAXTER-2024BAX020388

PATIENT
  Age: 63 Year
  Sex: Female

DRUGS (4)
  1. OLIMEL [Suspect]
     Active Substance: AMINO ACIDS\DEXTROSE\SOYBEAN OIL
     Indication: Parenteral nutrition
     Dosage: 1050 KCAL IN 1500 ML (OLIMEL PERIPHERAL N4)
     Route: 065
     Dates: start: 20240518, end: 20240521
  2. OLIMEL [Suspect]
     Active Substance: AMINO ACIDS\DEXTROSE\SOYBEAN OIL
     Dosage: 1050 KCAL IN 1500 ML (OLIMEL PERIPHERAL N4)
     Route: 065
     Dates: start: 202405, end: 20240526
  3. ACETAMINOPHEN [Suspect]
     Active Substance: ACETAMINOPHEN
     Indication: Adverse event
     Dosage: UNK
     Route: 042
     Dates: start: 20240520
  4. CEFTRIAXONE [Suspect]
     Active Substance: CEFTRIAXONE\CEFTRIAXONE SODIUM
     Indication: Adverse event
     Dosage: AT AN UNSPECIFIED DOSE, EVERY 12 HOURLY
     Route: 042
     Dates: start: 20240521

REACTIONS (13)
  - Sepsis [Recovering/Resolving]
  - Hypotension [Unknown]
  - Headache [Unknown]
  - Nausea [Unknown]
  - Vomiting [Unknown]
  - Pain [Unknown]
  - Tremor [Unknown]
  - Feeling cold [Unknown]
  - White blood cell count increased [Unknown]
  - Pyrexia [Recovered/Resolved]
  - Discomfort [Recovering/Resolving]
  - Complication associated with device [Unknown]
  - Catheter site erythema [Unknown]

NARRATIVE: CASE EVENT DATE: 20240520
